FAERS Safety Report 7244684-1 (Version None)
Quarter: 2011Q1

REPORT INFORMATION
  Report Type: 
  Country: None (occurrence: None)
  Receive Date: 20110126
  Receipt Date: 20110120
  Transmission Date: 20110831
  Serious: Yes (Hospitalization)
  Sender: FDA-Public Use
  Company Number: FR-BIOGENIDEC-2009BI016462

PATIENT
  Age: 45 Year
  Sex: Female
  Weight: 57 kg

DRUGS (7)
  1. LORAZEPAM [Concomitant]
     Indication: AFFECTIVE DISORDER
     Route: 048
     Dates: start: 20070401
  2. NATALIZUMAB [Suspect]
     Indication: MULTIPLE SCLEROSIS
     Route: 042
     Dates: start: 20061124
  3. MAGNESIUM + VITAMIN B6 [Concomitant]
     Indication: PAIN
     Route: 048
     Dates: start: 20090401
  4. LUTHERAN [Concomitant]
     Indication: CONTRACEPTION
     Route: 048
     Dates: start: 20061218
  5. COPAXONE [Concomitant]
     Dates: start: 20091201, end: 20100201
  6. ACETAMINOPHEN W/ PROPOXYPHENE HCL [Concomitant]
     Indication: PAIN
     Route: 048
     Dates: start: 20090401
  7. BETAFERON [Concomitant]
     Dates: start: 20100201

REACTIONS (1)
  - PROGRESSIVE MULTIFOCAL LEUKOENCEPHALOPATHY [None]
